FAERS Safety Report 13385000 (Version 1)
Quarter: 2017Q1

REPORT INFORMATION
  Report Type: Spontaneous
  Country: US (occurrence: US)
  Receive Date: 20170329
  Receipt Date: 20170329
  Transmission Date: 20170429
  Serious: No
  Sender: FDA-Public Use
  Company Number: US-SMITH AND NEPHEW, INC-2016SMT00230

PATIENT
  Age: 59 Year
  Sex: Female
  Weight: 86.17 kg

DRUGS (2)
  1. STANBACK ASPIRIN POWDER [Concomitant]
     Dosage: UNK, AS DIRECTED
  2. COLLAGENASE SANTYL [Suspect]
     Active Substance: COLLAGENASE CLOSTRIDIUM HISTOLYTICUM
     Indication: SKIN ULCER
     Dosage: 0.33 TSP, 2X/DAY
     Route: 061
     Dates: start: 20151224, end: 201602

REACTIONS (9)
  - Application site erythema [Not Recovered/Not Resolved]
  - Wound complication [Unknown]
  - Drug administered at inappropriate site [Unknown]
  - Application site scab [Unknown]
  - Application site pain [Not Recovered/Not Resolved]
  - Infected skin ulcer [Unknown]
  - Application site haemorrhage [Recovered/Resolved]
  - Drug ineffective for unapproved indication [Unknown]
  - Skin ulcer [Not Recovered/Not Resolved]

NARRATIVE: CASE EVENT DATE: 201601
